FAERS Safety Report 23987016 (Version 1)
Quarter: 2024Q2

REPORT INFORMATION
  Report Type: Spontaneous
  Country: JP (occurrence: JP)
  Receive Date: 20240618
  Receipt Date: 20240618
  Transmission Date: 20240716
  Serious: Yes (Hospitalization)
  Sender: FDA-Public Use
  Company Number: JP-ferring-EVA202400896FERRINGPH

PATIENT

DRUGS (1)
  1. DESMOPRESSIN ACETATE [Suspect]
     Active Substance: DESMOPRESSIN ACETATE
     Indication: Diabetes insipidus
     Dosage: ONE TABLET IN MORNING, ONE TABLET IN AFTERNOON, ONE TABLET IN EVENING AND TWO TABLETS AT NIGHT.
     Route: 048

REACTIONS (2)
  - Seizure [Unknown]
  - Product use complaint [Unknown]

NARRATIVE: CASE EVENT DATE: 20240610
